FAERS Safety Report 13903280 (Version 1)
Quarter: 2017Q3

REPORT INFORMATION
  Report Type: Spontaneous
  Country: US (occurrence: US)
  Receive Date: 20170824
  Receipt Date: 20170824
  Transmission Date: 20171127
  Serious: Yes (Other)
  Sender: FDA-Public Use
  Company Number: US-PFIZER INC-2017358943

PATIENT
  Age: 44 Year
  Sex: Female
  Weight: 63.5 kg

DRUGS (3)
  1. EXCEDRIN [Concomitant]
     Active Substance: ACETAMINOPHEN\ASPIRIN\CAFFEINE
     Indication: MIGRAINE
     Dosage: 1 DF, DAILY [1 TABLET A DAY OR SOMETIMES MORE]
  2. CHANTIX [Suspect]
     Active Substance: VARENICLINE TARTRATE
     Indication: SMOKING CESSATION THERAPY
     Dosage: UNK
     Dates: start: 2015
  3. BENADRYL [Concomitant]
     Active Substance: DIPHENHYDRAMINE HYDROCHLORIDE
     Indication: MIGRAINE
     Dosage: 1 DF, DAILY [1 TABLET A DAY OR SOMETIMES MORE]

REACTIONS (6)
  - Abnormal dreams [Unknown]
  - Anxiety [Unknown]
  - Stress [Unknown]
  - Hallucination [Unknown]
  - Panic attack [Unknown]
  - Nightmare [Unknown]
